FAERS Safety Report 10258283 (Version 1)
Quarter: 2014Q2

REPORT INFORMATION
  Report Type: Spontaneous
  Country: US (occurrence: None)
  Receive Date: 20140623
  Receipt Date: 20140623
  Transmission Date: 20141212
  Serious: Yes (Hospitalization)
  Sender: FDA-Public Use
  Company Number: None

PATIENT
  Age: 69 Year
  Sex: Male

DRUGS (1)
  1. FERAHEME [Suspect]
     Dosage: 510 MG WEEKLY X 2 DOES INTRAVENOUS
     Route: 042
     Dates: start: 20140429

REACTIONS (3)
  - Respiratory distress [None]
  - Chest pain [None]
  - Skin discolouration [None]
